FAERS Safety Report 5044088-6 (Version None)
Quarter: 2006Q2

REPORT INFORMATION
  Report Type: 
  Country: None (occurrence: None)
  Receive Date: 20060601
  Receipt Date: 20060330
  Transmission Date: 20061013
  Serious: No
  Sender: FDA-Public Use
  Company Number: US200604000144

PATIENT
  Age: 43 Year
  Sex: Female

DRUGS (4)
  1. CYMBALTA [Suspect]
     Indication: ANXIETY
     Dosage: 30 MG
     Dates: start: 20060309
  2. PROZAC [Suspect]
     Indication: ANXIETY
     Dosage: 30 MG
     Dates: start: 19930101
  3. THYROID TAB [Concomitant]
  4. CITRUCEL (METHYLCELLULOSE) [Concomitant]

REACTIONS (3)
  - CONSTIPATION [None]
  - FATIGUE [None]
  - LETHARGY [None]
